FAERS Safety Report 9788633 (Version 2)
Quarter: 2014Q1

REPORT INFORMATION
  Report Type: Spontaneous
  Country: US (occurrence: US)
  Receive Date: 20131230
  Receipt Date: 20140129
  Transmission Date: 20141002
  Serious: No
  Sender: FDA-Public Use
  Company Number: US-009507513-1312USA009536

PATIENT
  Age: 5 Year
  Sex: Female
  Weight: 46.71 kg

DRUGS (2)
  1. ASMANEX TWISTHALER [Suspect]
     Indication: ASTHMA
     Dosage: 1 INHALATION ONCE A DAY IN THE MORNING
     Route: 055
     Dates: start: 20101217
  2. SINGULAIR [Concomitant]
     Dosage: 5 MG, QD
     Route: 048

REACTIONS (4)
  - Drug dose omission [Unknown]
  - Product quality issue [Unknown]
  - No adverse event [Unknown]
  - Inappropriate schedule of drug administration [Unknown]
